FAERS Safety Report 5456114-0 (Version None)
Quarter: 2007Q3

REPORT INFORMATION
  Report Type: 
  Country: None (occurrence: None)
  Receive Date: 20070918
  Receipt Date: 20070911
  Transmission Date: 20080115
  Serious: Yes (Other)
  Sender: FDA-Public Use
  Company Number: PHBS2007JP13793

PATIENT
  Age: 46 Year
  Sex: Male

DRUGS (7)
  1. NEORAL [Suspect]
     Indication: PUSTULAR PSORIASIS
     Dosage: 200 MG/DAY
     Route: 048
     Dates: start: 20070730, end: 20070828
  2. NEORAL [Suspect]
     Dosage: 150 MG/DAY
     Route: 048
     Dates: start: 20070831, end: 20070906
  3. RIMATIL [Concomitant]
  4. PREDONINE [Suspect]
     Indication: ARTHRALGIA
     Dosage: 20 MG/D
     Route: 048
     Dates: start: 20070803, end: 20070819
  5. PREDONINE [Suspect]
     Dosage: 15 MG/D
     Route: 048
     Dates: start: 20070820, end: 20070823
  6. PREDONINE [Suspect]
     Dosage: 10 MG/DAY
     Route: 048
     Dates: start: 20070824
  7. ALLELOCK [Concomitant]
     Dosage: 10 MG/DAY
     Route: 048

REACTIONS (3)
  - C-REACTIVE PROTEIN INCREASED [None]
  - INFECTION [None]
  - WHITE BLOOD CELL COUNT INCREASED [None]
